FAERS Safety Report 15581803 (Version 1)
Quarter: 2018Q4

REPORT INFORMATION
  Report Type: Spontaneous
  Country: IT (occurrence: IT)
  Receive Date: 20181105
  Receipt Date: 20181105
  Transmission Date: 20190205
  Serious: Yes (Hospitalization, Other)
  Sender: FDA-Public Use
  Company Number: IT-AUROBINDO-AUR-APL-2018-053510

PATIENT
  Age: 70 Year
  Sex: Female

DRUGS (1)
  1. METOPROLOL FILM-COATED TABLET [Suspect]
     Active Substance: METOPROLOL
     Indication: CARDIAC DISORDER
     Dosage: 100 MILLIGRAM, DAILY
     Route: 048
     Dates: start: 20180922, end: 20180924

REACTIONS (1)
  - Toxic skin eruption [Recovered/Resolved]

NARRATIVE: CASE EVENT DATE: 20180924
